FAERS Safety Report 15905628 (Version 1)
Quarter: 2019Q1

REPORT INFORMATION
  Report Type: Spontaneous
  Country: US (occurrence: US)
  Receive Date: 20190201
  Receipt Date: 20190201
  Transmission Date: 20190417
  Serious: No
  Sender: FDA-Public Use
  Company Number: None

PATIENT
  Age: 72 Year
  Sex: Male
  Weight: 81 kg

DRUGS (4)
  1. EZETIMIBE/SIMVASTATIN [Concomitant]
     Active Substance: EZETIMIBE\SIMVASTATIN
  2. LOSARTAN, 100MG AUROBINDO [Concomitant]
     Active Substance: LOSARTAN
  3. BROPROPRION [Concomitant]
  4. VIIBRYD [Suspect]
     Active Substance: VILAZODONE HYDROCHLORIDE
     Dosage: ?          QUANTITY:2 TABLET(S);?
     Route: 048
     Dates: start: 20181115, end: 20181220

REACTIONS (1)
  - Fatigue [None]

NARRATIVE: CASE EVENT DATE: 20181215
